FAERS Safety Report 18470937 (Version 11)
Quarter: 2021Q3

REPORT INFORMATION
  Report Type: Report from Study
  Country: None (occurrence: US)
  Receive Date: 20201106
  Receipt Date: 20210921
  Transmission Date: 20211014
  Serious: Yes (Hospitalization, Other)
  Sender: FDA-Public Use
  Company Number: US-ABBVIE-20K-163-3637725-00

PATIENT
  Age: 59 Year
  Sex: Male

DRUGS (3)
  1. RINVOQ [Suspect]
     Active Substance: UPADACITINIB
     Route: 048
  2. RINVOQ [Suspect]
     Active Substance: UPADACITINIB
     Indication: RHEUMATOID ARTHRITIS
     Route: 048
     Dates: start: 202006
  3. RINVOQ [Suspect]
     Active Substance: UPADACITINIB
     Route: 048

REACTIONS (12)
  - Urinary tract infection [Unknown]
  - Malnutrition [Unknown]
  - Femur fracture [Recovering/Resolving]
  - Fall [Recovered/Resolved]
  - Gait inability [Unknown]
  - Oedema [Unknown]
  - Overdose [Unknown]
  - Joint injury [Recovering/Resolving]
  - Lower limb fracture [Not Recovered/Not Resolved]
  - Fatigue [Unknown]
  - Bone density decreased [Recovering/Resolving]
  - Anaemia [Unknown]

NARRATIVE: CASE EVENT DATE: 2020
